FAERS Safety Report 9100490 (Version 1)
Quarter: 2013Q1

REPORT INFORMATION
  Report Type: Spontaneous
  Country: CO (occurrence: CO)
  Receive Date: 20130215
  Receipt Date: 20130215
  Transmission Date: 20140127
  Serious: Yes (Other)
  Sender: FDA-Public Use
  Company Number: CO-PFIZER INC-2013057939

PATIENT
  Age: 51 Year
  Sex: Male

DRUGS (4)
  1. LYRICA [Suspect]
     Indication: PAIN
     Dosage: 150 MG, 1X/DAY
     Route: 048
     Dates: start: 201211
  2. LOSARTAN [Concomitant]
     Indication: HYPERTENSION
     Dosage: HALF A TABLET OF 50MG IN THE MORNING AND A TABLET OF 50MG AT NIGHT, 1X/DAY
     Route: 048
     Dates: start: 2012
  3. CLONAZEPAM [Concomitant]
     Indication: DEPRESSION
     Dosage: 5 DROPS OF 2.5MG AT NIGHT, 1X/DAY
     Route: 048
     Dates: start: 201211
  4. CLONAZEPAM [Concomitant]
     Indication: NERVOUSNESS

REACTIONS (6)
  - Mental impairment [Recovered/Resolved]
  - Ejaculation disorder [Recovered/Resolved]
  - Fatigue [Recovered/Resolved]
  - Musculoskeletal pain [Recovering/Resolving]
  - Stress [Recovering/Resolving]
  - Depression [Recovering/Resolving]
